FAERS Safety Report 19738845 (Version 5)
Quarter: 2021Q4

REPORT INFORMATION
  Report Type: Report from Study
  Country: US (occurrence: US)
  Receive Date: 20210824
  Receipt Date: 20211030
  Transmission Date: 20220303
  Serious: Yes (Other)
  Sender: FDA-Public Use
  Company Number: NVSC2021US190895

PATIENT
  Sex: Male

DRUGS (2)
  1. PROMACTA [Suspect]
     Active Substance: ELTROMBOPAG OLAMINE
     Indication: Immune thrombocytopenia
     Dosage: 25 MG, BID
     Route: 048
  2. PROMACTA [Suspect]
     Active Substance: ELTROMBOPAG OLAMINE
     Dosage: 25 MG, ONCE2SDO
     Route: 048

REACTIONS (15)
  - General physical health deterioration [Not Recovered/Not Resolved]
  - Mental status changes [Unknown]
  - Insomnia [Unknown]
  - Quality of life decreased [Unknown]
  - Amnesia [Unknown]
  - Fall [Unknown]
  - Restlessness [Unknown]
  - Anxiety [Unknown]
  - Arthralgia [Unknown]
  - Urinary tract infection [Unknown]
  - Irritability [Unknown]
  - Platelet count increased [Unknown]
  - Diarrhoea [Unknown]
  - Product dose omission issue [Unknown]
  - Product prescribing error [Unknown]
